FAERS Safety Report 8680209 (Version 5)
Quarter: 2017Q1

REPORT INFORMATION
  Report Type: Report from Study
  Country: BR (occurrence: BR)
  Receive Date: 20120724
  Receipt Date: 20170327
  Transmission Date: 20170429
  Serious: Yes (Hospitalization, Other)
  Sender: FDA-Public Use
  Company Number: BR-ROCHE-669185

PATIENT
  Age: 35 Year
  Sex: Female
  Weight: 70 kg

DRUGS (31)
  1. DORFLEX [Concomitant]
     Active Substance: CAFFEINE\DIPYRONE\ORPHENADRINE
     Indication: PAIN
  2. TOPIRAMATE. [Concomitant]
     Active Substance: TOPIRAMATE
     Dosage: RECEIVED 3 TIMES AT NIGHT
     Route: 065
  3. NEOZINE [Concomitant]
     Active Substance: LEVOMEPROMAZINE
     Route: 065
  4. PREDNISONE. [Concomitant]
     Active Substance: PREDNISONE
  5. MABTHERA [Suspect]
     Active Substance: RITUXIMAB
     Indication: RHEUMATOID ARTHRITIS
     Dosage: DOSE: 1000 MG/ML
     Route: 042
     Dates: start: 200906, end: 200906
  6. MABTHERA [Suspect]
     Active Substance: RITUXIMAB
     Dosage: DOSE: 1000 MG/ML, 1 INFUSION
     Route: 042
     Dates: start: 20100430, end: 20100516
  7. GARDENAL [Concomitant]
     Active Substance: PHENOBARBITAL
     Dosage: DAILY
     Route: 065
  8. TOPIRAMATE. [Concomitant]
     Active Substance: TOPIRAMATE
     Route: 065
  9. MABTHERA [Suspect]
     Active Substance: RITUXIMAB
     Route: 042
  10. CITALOPRAM [Concomitant]
     Active Substance: CITALOPRAM HYDROBROMIDE
     Indication: DEPRESSION
     Route: 065
  11. CASSIA FISTULA [Concomitant]
     Indication: CONSTIPATION
     Dosage: DOSE: 1-2 CAPS, TAKEN DAILY
     Route: 048
  12. FLUNAZOL [Concomitant]
     Indication: HYPERSENSITIVITY
     Route: 065
  13. CHLOROQUINE HYDROCHLORIDE [Concomitant]
     Active Substance: CHLOROQUINE HYDROCHLORIDE
     Route: 065
  14. FLUOXETINE [Concomitant]
     Active Substance: FLUOXETINE HYDROCHLORIDE
     Route: 065
  15. FRUSEMIDE [Concomitant]
     Active Substance: FUROSEMIDE
     Route: 065
  16. DIPYRONE [Concomitant]
     Active Substance: DIPYRONE
     Indication: PAIN
     Dosage: AS NEEDED
     Route: 065
  17. AZATHIOPRINE. [Concomitant]
     Active Substance: AZATHIOPRINE
  18. HYDROXYCHLOROQUINE [Concomitant]
     Active Substance: HYDROXYCHLOROQUINE
     Route: 065
  19. NAPROXEN. [Concomitant]
     Active Substance: NAPROXEN
     Indication: HEADACHE
     Route: 065
  20. PANTOPRAZOLE [Concomitant]
     Active Substance: PANTOPRAZOLE SODIUM
  21. MIOSAN [Concomitant]
     Active Substance: CYCLOBENZAPRINE
     Indication: HEADACHE
     Route: 065
  22. MABTHERA [Suspect]
     Active Substance: RITUXIMAB
     Indication: SYSTEMIC LUPUS ERYTHEMATOSUS
     Dosage: DOSE: 1000 MG/ML. THIRD CYCLE: 1 INFUSION EVERY 15 DAYS, FORM INFUSION
     Route: 042
     Dates: start: 20080711, end: 200810
  23. DORFLEX [Concomitant]
     Active Substance: CAFFEINE\DIPYRONE\ORPHENADRINE
     Indication: HEADACHE
     Dosage: AS NEEDED
     Route: 065
  24. TRAMADOL. [Concomitant]
     Active Substance: TRAMADOL
     Indication: HEADACHE
     Route: 065
  25. SENE [Concomitant]
     Route: 065
  26. CORIANDRUM SATIVUM [Concomitant]
     Indication: CONSTIPATION
     Dosage: DOSE: 1-2 CAPS, TAKEN DAILY
     Route: 048
  27. SENNA [Concomitant]
     Active Substance: SENNA LEAF\SENNOSIDES\SENNOSIDES A AND B
     Indication: CONSTIPATION
     Dosage: DOSE: 1-2 CAPS, TAKEN DAILY
     Route: 048
  28. PHENOBARBITAL. [Concomitant]
     Active Substance: PHENOBARBITAL
     Route: 065
  29. RIVOTRIL [Concomitant]
     Active Substance: CLONAZEPAM
     Route: 065
  30. TAMARINDUS INDICA [Concomitant]
     Indication: CONSTIPATION
     Dosage: DOSE: 1-2 CAPS, TAKEN DAILY
     Route: 048
  31. RIVOTRIL [Concomitant]
     Active Substance: CLONAZEPAM
     Route: 065

REACTIONS (29)
  - Weight decreased [Not Recovered/Not Resolved]
  - Off label use [Unknown]
  - Erythema [Not Recovered/Not Resolved]
  - Hypersensitivity [Unknown]
  - Arthralgia [Unknown]
  - Alopecia [Recovering/Resolving]
  - Nausea [Recovered/Resolved]
  - Vomiting [Recovered/Resolved]
  - Multiple sclerosis [Not Recovered/Not Resolved]
  - Hydrocephalus [Unknown]
  - Seizure [Not Recovered/Not Resolved]
  - Intervertebral disc protrusion [Unknown]
  - Neck pain [Unknown]
  - Depression [Unknown]
  - Temporomandibular joint syndrome [Not Recovered/Not Resolved]
  - Fear [Not Recovered/Not Resolved]
  - Malaise [Unknown]
  - Nausea [Not Recovered/Not Resolved]
  - Headache [Recovered/Resolved]
  - Stenosis [Unknown]
  - Headache [Not Recovered/Not Resolved]
  - Peripheral swelling [Unknown]
  - Erythema [Recovered/Resolved]
  - Headache [Unknown]
  - Diplopia [Unknown]
  - Therapeutic response decreased [Not Recovered/Not Resolved]
  - Arthralgia [Not Recovered/Not Resolved]
  - Urinary tract infection [Unknown]
  - Pain [Not Recovered/Not Resolved]

NARRATIVE: CASE EVENT DATE: 20080711
